FAERS Safety Report 8157330-X (Version None)
Quarter: 2012Q1

REPORT INFORMATION
  Report Type: 
  Country: None (occurrence: None)
  Receive Date: 20120222
  Receipt Date: 20120217
  Transmission Date: 20120608
  Serious: Yes (Hospitalization)
  Sender: FDA-Public Use
  Company Number: CA-ROCHE-1041784

PATIENT
  Sex: Male

DRUGS (2)
  1. RIBAVIRIN [Suspect]
     Indication: HEPATITIS C
     Dates: start: 20111209, end: 20120215
  2. PEGASYS [Suspect]
     Indication: HEPATITIS C
     Route: 058
     Dates: start: 20111209, end: 20120215

REACTIONS (2)
  - DEEP VEIN THROMBOSIS [None]
  - PULMONARY EMBOLISM [None]
